FAERS Safety Report 6456310-X (Version None)
Quarter: 2009Q4

REPORT INFORMATION
  Report Type: 
  Country: None (occurrence: None)
  Receive Date: 20091125
  Receipt Date: 20091110
  Transmission Date: 20100525
  Serious: Yes (Death, Life-Threatening)
  Sender: FDA-Public Use
  Company Number: JP-ROCHE-660203

PATIENT
  Sex: Male
  Weight: 54 kg

DRUGS (13)
  1. CELLCEPT [Suspect]
     Indication: CHRONIC GRAFT VERSUS HOST DISEASE
     Route: 048
     Dates: start: 20051028, end: 20051127
  2. CELLCEPT [Suspect]
     Route: 048
     Dates: start: 20051128, end: 20051216
  3. CELLCEPT [Suspect]
     Route: 048
     Dates: start: 20051217, end: 20060130
  4. CELLCEPT [Suspect]
     Route: 048
     Dates: start: 20060130, end: 20060301
  5. CELLCEPT [Suspect]
     Route: 048
     Dates: start: 20060302, end: 20060314
  6. CELLCEPT [Suspect]
     Route: 048
     Dates: start: 20060315, end: 20060325
  7. CELLCEPT [Suspect]
     Route: 048
     Dates: start: 20060331, end: 20060413
  8. SANDIMMUNE [Suspect]
     Indication: PROPHYLAXIS AGAINST GRAFT VERSUS HOST DISEASE
     Dosage: ROUTE REPORTED AS INTRAVENOUS (NOT OTHERWISE SPECIFIED)
     Route: 042
     Dates: start: 20050627
  9. SANDIMMUNE [Suspect]
     Route: 042
     Dates: end: 20060406
  10. CYCLOSPORINE [Suspect]
     Indication: PROPHYLAXIS AGAINST GRAFT VERSUS HOST DISEASE
     Dosage: DOSE FORM: ORAL FORMULATION (NOT OTHERWISE SPECIFIED)
     Route: 048
     Dates: start: 20050627
  11. CYCLOSPORINE [Suspect]
     Route: 048
     Dates: end: 20060406
  12. MEDROL [Suspect]
     Indication: CHRONIC GRAFT VERSUS HOST DISEASE
     Route: 048
     Dates: start: 20050920, end: 20060413
  13. METHYLPREDNISOLONE SODIUM SUCCINATE [Suspect]
     Indication: CHRONIC GRAFT VERSUS HOST DISEASE
     Dosage: ROUTE REPORTED AS INTRAVENOUS (NOT OTHERWISE SPECIFIED).
     Route: 042
     Dates: start: 20050920, end: 20060413

REACTIONS (6)
  - CYTOMEGALOVIRUS VIRAEMIA [None]
  - FUNGAL TEST [None]
  - MULTI-ORGAN FAILURE [None]
  - PANCREATITIS ACUTE [None]
  - SEPSIS [None]
  - THROMBOTIC MICROANGIOPATHY [None]
